FAERS Safety Report 5198413-6 (Version None)
Quarter: 2007Q1

REPORT INFORMATION
  Report Type: 
  Country: None (occurrence: None)
  Receive Date: 20070104
  Receipt Date: 20061227
  Transmission Date: 20070707
  Serious: Yes (Hospitalization)
  Sender: FDA-Public Use
  Company Number: IN-BRISTOL-MYERS SQUIBB COMPANY-13626379

PATIENT
  Age: 52 Year
  Sex: Male
  Weight: 45 kg

DRUGS (10)
  1. CISPLATIN [Suspect]
     Indication: NON-SMALL CELL LUNG CANCER
     Route: 042
     Dates: start: 20061117
  2. PF-3512676 [Suspect]
     Indication: NON-SMALL CELL LUNG CANCER
     Route: 058
     Dates: start: 20061117
  3. GEMCITABINE [Suspect]
     Indication: NON-SMALL CELL LUNG CANCER
     Route: 042
     Dates: start: 20061117
  4. FEFOL [Concomitant]
     Route: 048
     Dates: start: 20061201
  5. ACETAMINOPHEN + DICLOFENAC POTASSIUM [Concomitant]
     Route: 048
     Dates: start: 20061201, end: 20061205
  6. VITAMIN B COMPLEX CAP [Concomitant]
     Route: 048
     Dates: start: 20061006
  7. POVIDONE IODINE [Concomitant]
     Route: 048
     Dates: start: 20061201
  8. TRAMADOL HCL [Concomitant]
     Route: 042
     Dates: start: 20061206, end: 20061206
  9. CIPLOX [Concomitant]
     Route: 048
     Dates: start: 20061206
  10. GRANISETRON [Concomitant]
     Route: 048
     Dates: start: 20061206, end: 20061207

REACTIONS (8)
  - ANAEMIA [None]
  - BLOOD SODIUM DECREASED [None]
  - DEHYDRATION [None]
  - DIARRHOEA [None]
  - GENERAL PHYSICAL HEALTH DETERIORATION [None]
  - HYPERCALCAEMIA [None]
  - HYPOKALAEMIA [None]
  - VOMITING [None]
